FAERS Safety Report 8917482 (Version 3)
Quarter: 2013Q1

REPORT INFORMATION
  Report Type: Spontaneous
  Country: US (occurrence: US)
  Receive Date: 20121120
  Receipt Date: 20130114
  Transmission Date: 20140127
  Serious: Yes (Other)
  Sender: FDA-Public Use
  Company Number: US-PFIZER INC-2012288233

PATIENT
  Age: 60 Year
  Sex: Female
  Weight: 61.22 kg

DRUGS (5)
  1. ALDACTONE [Suspect]
     Indication: HYPERTENSION
     Dosage: 25 MG, 2X/DAY
  2. SPIRIVA [Suspect]
     Indication: CHRONIC OBSTRUCTIVE PULMONARY DISEASE
     Dosage: UNK DOSE TWO PUFFS, 2X/DAY
     Dates: start: 201210, end: 201210
  3. ZOLOFT [Suspect]
     Indication: DEPRESSION
     Dosage: 200 MG, DAILY
  4. NEURONTIN [Suspect]
     Dosage: UNK
  5. ZOCOR [Concomitant]
     Indication: BLOOD CHOLESTEROL INCREASED
     Dosage: 40 MG, DAILY

REACTIONS (5)
  - Heart valve incompetence [Not Recovered/Not Resolved]
  - Obstructive airways disorder [Unknown]
  - Laryngitis [Recovered/Resolved]
  - Dyspnoea [Unknown]
  - Throat irritation [Unknown]
